FAERS Safety Report 9068427 (Version 2)
Quarter: 2013Q1

REPORT INFORMATION
  Report Type: Report from Study
  Country: AR (occurrence: AR)
  Receive Date: 20130206
  Receipt Date: 20130312
  Transmission Date: 20140127
  Serious: Yes (Disabling, Other)
  Sender: FDA-Public Use
  Company Number: AR-ABBOTT-12P-007-1019620-00

PATIENT
  Sex: Male

DRUGS (4)
  1. HUMIRA [Suspect]
     Indication: RHEUMATOID ARTHRITIS
     Route: 058
     Dates: start: 20110601, end: 201210
  2. HUMIRA [Suspect]
     Route: 058
     Dates: start: 20130225
  3. ATORVASTATIN [Concomitant]
     Indication: PRODUCT USED FOR UNKNOWN INDICATION
     Dosage: EVERY MORNING
  4. INDAPAMIDE W/PERINDOPRIL [Concomitant]
     Indication: PRODUCT USED FOR UNKNOWN INDICATION
     Dosage: EVERY MORNING

REACTIONS (3)
  - Aphasia [Not Recovered/Not Resolved]
  - Agraphia [Not Recovered/Not Resolved]
  - Cerebrovascular accident [Recovering/Resolving]
